FAERS Safety Report 9372119 (Version 2)
Quarter: 2013Q4

REPORT INFORMATION
  Report Type: Spontaneous
  Country: US (occurrence: None)
  Receive Date: 20130625
  Receipt Date: 20131104
  Transmission Date: 20140711
  Serious: Yes (Hospitalization, Other)
  Sender: FDA-Public Use
  Company Number: ACO_36866_2013

PATIENT
  Age: 58 Year
  Sex: 0
  Weight: 61.2 kg

DRUGS (11)
  1. AMPYRA [Suspect]
     Indication: GAIT DISTURBANCE
     Route: 048
     Dates: start: 20130601, end: 20130608
  2. AMPYRA [Suspect]
     Indication: TEMPERATURE INTOLERANCE
     Route: 048
     Dates: start: 20130601, end: 20130608
  3. AMPYRA [Suspect]
     Indication: FATIGUE
     Route: 048
     Dates: start: 20130601, end: 20130608
  4. DEPAKOTE (VALPROATE SEMISODIUM) [Concomitant]
  5. BACLOFEN (BACLOFEN) [Concomitant]
  6. XANAX (ALPRAZOLAM) [Concomitant]
  7. NORCO (HYDROCODONE BITARTRATE, PARACETAMOL) [Concomitant]
  8. BETASERON (ALBUMIN HUMAN, GLUCOSE, INTERFERON BETA) [Concomitant]
  9. SEROQUEL (QUETIAPINE FUMARATE) [Concomitant]
  10. TRAZODONE HCL (TRAZODONE HYDROCHLORIDE) [Concomitant]
  11. VESICARE (SOLIFENACIN SUCCINATE) [Concomitant]

REACTIONS (7)
  - Muscle spasms [None]
  - Abasia [None]
  - Aphasia [None]
  - Amnesia [None]
  - Dyskinesia [None]
  - Urinary incontinence [None]
  - Faecal incontinence [None]
